FAERS Safety Report 7004066-4 (Version None)
Quarter: 2010Q3

REPORT INFORMATION
  Report Type: 
  Country: None (occurrence: None)
  Receive Date: 20100920
  Receipt Date: 20100120
  Transmission Date: 20110219
  Serious: No
  Sender: FDA-Public Use
  Company Number: US-WYE-H13118310

PATIENT
  Sex: Male

DRUGS (2)
  1. PRISTIQ [Suspect]
  2. PRISTIQ [Suspect]
     Dosage: DECREASING PER MD EVERY OTHER DAY, THEN EVERY THIRD DAY

REACTIONS (3)
  - FEELING ABNORMAL [None]
  - MEMORY IMPAIRMENT [None]
  - PAIN [None]
